FAERS Safety Report 25883547 (Version 1)
Quarter: 2025Q4

REPORT INFORMATION
  Report Type: Spontaneous
  Country: US (occurrence: US)
  Receive Date: 20251006
  Receipt Date: 20251006
  Transmission Date: 20260118
  Serious: Yes (Other)
  Sender: DAIICHI
  Company Number: US-DAIICHI SANKYO, INC.-DS-2025-167671-USAA

PATIENT
  Age: 38 Year
  Sex: Female

DRUGS (1)
  1. DATROWAY [Suspect]
     Active Substance: DATOPOTAMAB DERUXTECAN-DLNK
     Indication: Lung neoplasm malignant
     Dosage: UNK
     Route: 065
     Dates: start: 2025

REACTIONS (1)
  - Anal ulcer [Recovering/Resolving]

NARRATIVE: CASE EVENT DATE: 20250101
